FAERS Safety Report 9288336 (Version 1)
Quarter: 2013Q2

REPORT INFORMATION
  Report Type: Spontaneous
  Country: US (occurrence: None)
  Receive Date: 20130513
  Receipt Date: 20130513
  Transmission Date: 20140414
  Serious: Yes (Disabling)
  Sender: FDA-Public Use
  Company Number: None

PATIENT
  Age: 66 Year
  Sex: Female
  Weight: 73.48 kg

DRUGS (1)
  1. CIPRO [Suspect]
     Indication: URINARY TRACT INFECTION
     Dosage: 250MG BID, BID FOR 5 DAYS, PO
     Route: 048
     Dates: start: 20130325, end: 20130329

REACTIONS (4)
  - Arthralgia [None]
  - Arthralgia [None]
  - Musculoskeletal pain [None]
  - Arthralgia [None]
